FAERS Safety Report 7662648-0 (Version None)
Quarter: 2011Q3

REPORT INFORMATION
  Report Type: 
  Country: None (occurrence: None)
  Receive Date: 20110805
  Receipt Date: 20101020
  Transmission Date: 20111222
  Serious: No
  Sender: FDA-Public Use
  Company Number: US-ABBOTT-10P-163-0669901-00

PATIENT
  Sex: Female
  Weight: 90.8 kg

DRUGS (8)
  1. HYDROCODONE BITARTRATE + ACETAMINOPHEN [Suspect]
  2. OMEPRAZOLE [Concomitant]
     Indication: GASTROOESOPHAGEAL REFLUX DISEASE
  3. LEVOTHYROXINE SODIUM [Concomitant]
     Indication: HYPOTHYROIDISM
  4. LYRICA [Suspect]
     Indication: TRIGEMINAL NEURALGIA
     Dosage: DAILY DOSE: 2- 75MG TABLETS
     Dates: start: 20100501
  5. NIASPAN [Suspect]
     Indication: BLOOD CHOLESTEROL INCREASED
     Dosage: EVERY NIGHT
     Dates: start: 20100901
  6. HYDROCODONE BITARTRATE + ACETAMINOPHEN [Suspect]
     Indication: TRIGEMINAL NEURALGIA
     Dosage: 5/325MG AS NEEDED
     Dates: start: 20100101
  7. LISINOPRIL [Concomitant]
     Indication: HYPERTENSION
     Dosage: 20/12.5MG
  8. ASPIRIN [Concomitant]
     Indication: PRODUCT USED FOR UNKNOWN INDICATION
     Dosage: 1/2 HOUR BEFORE NIASPAN COATED

REACTIONS (4)
  - FEAR [None]
  - ERYTHEMA [None]
  - SKIN WARM [None]
  - PRURITUS [None]
